FAERS Safety Report 7333905-2 (Version None)
Quarter: 2011Q1

REPORT INFORMATION
  Report Type: 
  Country: None (occurrence: None)
  Receive Date: 20110307
  Receipt Date: 20110224
  Transmission Date: 20110831
  Serious: Yes (Hospitalization)
  Sender: FDA-Public Use
  Company Number: US-BIOGENIDEC-2010BI013830

PATIENT
  Age: 49 Year
  Sex: Male
  Weight: 45 kg

DRUGS (1)
  1. AVONEX [Suspect]
     Indication: MULTIPLE SCLEROSIS
     Route: 030
     Dates: start: 20090619, end: 20101201

REACTIONS (5)
  - THROMBOSIS [None]
  - SEPSIS [None]
  - IATROGENIC INJURY [None]
  - CALCULUS BLADDER [None]
  - MUSCLE SPASTICITY [None]
